FAERS Safety Report 5258443-2 (Version None)
Quarter: 2007Q1

REPORT INFORMATION
  Report Type: 
  Country: None (occurrence: None)
  Receive Date: 20061217
  Receipt Date: 20060926
  Transmission Date: 20070707
  Serious: Yes (Other)
  Sender: FDA-Public Use
  Company Number: US-JNJFOC-20060704046

PATIENT
  Age: 41 Year
  Sex: Female
  Weight: 59.8748 kg

DRUGS (4)
  1. LEVAQUIN [Suspect]
     Indication: UPPER RESPIRATORY TRACT INFECTION
     Dosage: 500 MG, 1 IN 1 DAY, ORAL
     Route: 048
     Dates: start: 20060628, end: 20060630
  2. ESTROSTEP (ANOVLAR) [Concomitant]
  3. FIORCET (AXOTAL (OLD FORM)) [Concomitant]
  4. LORAZEPAM [Concomitant]

REACTIONS (16)
  - ANXIETY [None]
  - ARTHRALGIA [None]
  - BACK PAIN [None]
  - BURNING SENSATION [None]
  - CANDIDIASIS [None]
  - CONFUSIONAL STATE [None]
  - DEPRESSION [None]
  - EYE SWELLING [None]
  - HALLUCINATION [None]
  - HYPERAESTHESIA [None]
  - INFECTION [None]
  - PAIN [None]
  - URINARY TRACT INFECTION [None]
  - URTICARIA [None]
  - VISUAL DISTURBANCE [None]
  - VULVOVAGINAL MYCOTIC INFECTION [None]
